FAERS Safety Report 15318992 (Version 1)
Quarter: 2018Q3

REPORT INFORMATION
  Report Type: Spontaneous
  Country: US (occurrence: US)
  Receive Date: 20180820
  Receipt Date: 20180820
  Transmission Date: 20181010
  Serious: Yes (Disabling)
  Sender: FDA-Public Use
  Company Number: None

PATIENT
  Age: 47 Year
  Sex: Female
  Weight: 58.95 kg

DRUGS (5)
  1. EVENING PRIMROSE OIL [Concomitant]
     Active Substance: EVENING PRIMROSE OIL\HERBALS
  2. NIACIN. [Concomitant]
     Active Substance: NIACIN
  3. TOPAMAX [Concomitant]
     Active Substance: TOPIRAMATE
  4. BIOTIN [Concomitant]
     Active Substance: BIOTIN
  5. LAMOTRIGINE 100MG TABLETS [Suspect]
     Active Substance: LAMOTRIGINE
     Indication: BIPOLAR DISORDER
     Route: 048

REACTIONS (6)
  - Product substitution issue [None]
  - Feeling abnormal [None]
  - Product use complaint [None]
  - Drug ineffective [None]
  - General physical health deterioration [None]
  - Product lot number issue [None]

NARRATIVE: CASE EVENT DATE: 20180801
